FAERS Safety Report 7822197-3 (Version None)
Quarter: 2011Q4

REPORT INFORMATION
  Report Type: 
  Country: None (occurrence: None)
  Receive Date: 20111018
  Receipt Date: 20111011
  Transmission Date: 20120403
  Serious: Yes (Death, Hospitalization)
  Sender: FDA-Public Use
  Company Number: JP-AMGEN-JPNCT2011001528

PATIENT
  Age: 62 Year
  Sex: Male
  Weight: 43 kg

DRUGS (11)
  1. FLUOROURACIL [Suspect]
     Indication: COLORECTAL CANCER
     Route: 040
     Dates: start: 20100826, end: 20101101
  2. MAGNESIUM OXIDE [Concomitant]
     Route: 048
  3. PANITUMUMAB [Suspect]
     Indication: COLORECTAL CANCER
     Dosage: 6 MG/KG, Q2WK
     Route: 041
     Dates: start: 20100826, end: 20100913
  4. PANITUMUMAB [Suspect]
     Dosage: 6 MG/KG, Q2WK
     Route: 041
     Dates: start: 20101101, end: 20101101
  5. IRINOTECAN HCL [Suspect]
     Indication: COLORECTAL CANCER
     Route: 041
     Dates: start: 20100826, end: 20101101
  6. ANTIHISTAMINES [Concomitant]
     Indication: PROPHYLAXIS
     Dosage: UNK
     Route: 065
  7. FLUOROURACIL [Suspect]
     Route: 041
     Dates: start: 20100826, end: 20101101
  8. PANITUMUMAB [Suspect]
     Dosage: 6 MG/KG, Q2WK
     Route: 041
     Dates: start: 20101007, end: 20101007
  9. LEVOLEUCOVORIN CALCIUM [Suspect]
     Indication: COLORECTAL CANCER
     Route: 041
     Dates: start: 20100826, end: 20101101
  10. PANITUMUMAB [Suspect]
     Dosage: 6 MG/KG, Q2WK
     Route: 041
     Dates: start: 20101007, end: 20101007
  11. MS CONTIN [Concomitant]
     Route: 048

REACTIONS (3)
  - FEBRILE NEUTROPENIA [None]
  - COLORECTAL CANCER [None]
  - DERMATITIS ACNEIFORM [None]
